FAERS Safety Report 19240185 (Version 1)
Quarter: 2021Q2

REPORT INFORMATION
  Report Type: Report from Study
  Country: FR (occurrence: FR)
  Receive Date: 20210511
  Receipt Date: 20210511
  Transmission Date: 20210717
  Serious: Yes (Hospitalization)
  Sender: FDA-Public Use
  Company Number: FR-BRISTOL-MYERS SQUIBB COMPANY-BMS-2021-035166

PATIENT
  Age: 58 Year
  Sex: Female
  Weight: 87 kg

DRUGS (3)
  1. NIVOLUMAB [Suspect]
     Active Substance: NIVOLUMAB
     Indication: OVARIAN CANCER
     Dosage: 276 MILLIGRAM EVERY 1 DAY(S)
     Route: 033
     Dates: start: 20210223, end: 20210223
  2. CISPLATIN. [Concomitant]
     Active Substance: CISPLATIN
     Indication: OVARIAN CANCER
     Dosage: 100 MILLIGRAM/SQ. METER, QD
     Route: 033
     Dates: start: 20210216, end: 20210216
  3. NIVOLUMAB [Suspect]
     Active Substance: NIVOLUMAB
     Dosage: 270 MILLIGRAM EVERY 1 DAY(S)
     Route: 033
     Dates: start: 20210310, end: 20210310

REACTIONS (1)
  - Catheter site pain [Recovered/Resolved]

NARRATIVE: CASE EVENT DATE: 20210323
